FAERS Safety Report 4296578-1 (Version None)
Quarter: 2004Q1

REPORT INFORMATION
  Report Type: 
  Country: None (occurrence: None)
  Receive Date: 20040217
  Receipt Date: 20030604
  Transmission Date: 20041129
  Serious: Yes (Hospitalization)
  Sender: FDA-Public Use
  Company Number: FR-GLAXOSMITHKLINE-B0301818A

PATIENT
  Age: 79 Year
  Sex: Female

DRUGS (5)
  1. DEROXAT [Suspect]
     Indication: DEPRESSION
     Dosage: 20MG PER DAY
     Route: 048
     Dates: start: 20030401, end: 20030401
  2. HYZAAR [Suspect]
     Indication: HYPERTENSION
     Route: 048
  3. FELODIPINE [Suspect]
     Route: 048
  4. CELECTOL [Suspect]
     Route: 048
  5. FOSAMAX [Concomitant]
     Route: 048

REACTIONS (3)
  - FALL [None]
  - HYPONATRAEMIA [None]
  - PELVIC FRACTURE [None]
